FAERS Safety Report 11766209 (Version 1)
Quarter: 2015Q4

REPORT INFORMATION
  Report Type: Spontaneous
  Country: AU (occurrence: AU)
  Receive Date: 20151123
  Receipt Date: 20151123
  Transmission Date: 20160304
  Serious: Yes (Other)
  Sender: FDA-Public Use
  Company Number: AU-JNJFOC-20151113527

PATIENT
  Age: 26 Year
  Sex: Male

DRUGS (2)
  1. IBUPROFEN. [Suspect]
     Active Substance: IBUPROFEN
     Indication: BACK PAIN
     Route: 065
  2. IBUPROFEN. [Suspect]
     Active Substance: IBUPROFEN
     Route: 065

REACTIONS (6)
  - Malnutrition [Unknown]
  - Hypovolaemia [Unknown]
  - Weight decreased [Unknown]
  - Duodenal ulcer [Unknown]
  - Duodenal stenosis [Unknown]
  - Iron deficiency anaemia [Unknown]
